FAERS Safety Report 7788065-0 (Version None)
Quarter: 2011Q3

REPORT INFORMATION
  Report Type: 
  Country: None (occurrence: None)
  Receive Date: 20110927
  Receipt Date: 20110919
  Transmission Date: 20111222
  Serious: Yes (Hospitalization)
  Sender: FDA-Public Use
  Company Number: 2011140971

PATIENT
  Age: 51 Year
  Sex: Male
  Weight: 84 kg

DRUGS (2)
  1. FRAGMIN [Suspect]
     Indication: THROMBOSIS PROPHYLAXIS
     Dosage: 18000 IU, 1X/DAY, SUBCUTANEOUS
     Route: 058
     Dates: start: 20110518, end: 20110629
  2. FRAGMIN [Suspect]
     Indication: NEOPLASM MALIGNANT
     Dosage: 18000 IU, 1X/DAY, SUBCUTANEOUS
     Route: 058
     Dates: start: 20110518, end: 20110629

REACTIONS (2)
  - VISUAL IMPAIRMENT [None]
  - ISCHAEMIC STROKE [None]
